FAERS Safety Report 6555203-7 (Version None)
Quarter: 2010Q1

REPORT INFORMATION
  Report Type: 
  Country: None (occurrence: None)
  Receive Date: 20100128
  Receipt Date: 20100119
  Transmission Date: 20100710
  Serious: Yes (Other)
  Sender: FDA-Public Use
  Company Number: FR-PFIZER INC-2007082756

PATIENT
  Age: 40 Year
  Sex: Male

DRUGS (4)
  1. VFEND [Suspect]
     Indication: ASPERGILLOSIS
     Dosage: UNK
     Dates: start: 20020901, end: 20070901
  2. PROGRAF [Suspect]
  3. CELLCEPT [Suspect]
  4. CORTANCYL [Suspect]

REACTIONS (4)
  - ACTINIC KERATOSIS [None]
  - PHOTOSENSITIVITY REACTION [None]
  - RECURRENT CANCER [None]
  - SQUAMOUS CELL CARCINOMA [None]
